FAERS Safety Report 4481448-6 (Version None)
Quarter: 2004Q4

REPORT INFORMATION
  Report Type: 
  Country: None (occurrence: None)
  Receive Date: 20041021
  Receipt Date: 20041001
  Transmission Date: 20050328
  Serious: Yes (Other)
  Sender: FDA-Public Use
  Company Number: PHFR2004GB03717

PATIENT
  Age: 54 Year
  Sex: Female

DRUGS (1)
  1. CARBAMAZEPINE [Suspect]

REACTIONS (9)
  - ALLERGIC BRONCHITIS [None]
  - AMBLYOPIA [None]
  - ATAXIA [None]
  - BALANCE DISORDER [None]
  - BRONCHITIS [None]
  - CATARACT [None]
  - EOSINOPHILIA [None]
  - MUSCLE CRAMP [None]
  - TUNNEL VISION [None]
